FAERS Safety Report 8096201-4 (Version None)
Quarter: 2012Q1

REPORT INFORMATION
  Report Type: 
  Country: None (occurrence: None)
  Receive Date: 20120129
  Receipt Date: 20111208
  Transmission Date: 20120608
  Serious: No
  Sender: FDA-Public Use
  Company Number: US-ABBOTT-11P-163-0882285-00

PATIENT
  Sex: Female
  Weight: 49.486 kg

DRUGS (2)
  1. HUMIRA [Suspect]
     Indication: CROHN'S DISEASE
     Dates: start: 20111110
  2. INFLUENZA VACCINE [Concomitant]
     Indication: IMMUNISATION
     Dates: start: 20111207, end: 20111207

REACTIONS (2)
  - VIRAL INFECTION [None]
  - OROPHARYNGEAL PAIN [None]
